FAERS Safety Report 21810855 (Version 1)
Quarter: 2023Q1

REPORT INFORMATION
  Report Type: Spontaneous
  Country: US (occurrence: None)
  Receive Date: 20230103
  Receipt Date: 20230103
  Transmission Date: 20230417
  Serious: No
  Sender: FDA-Public Use
  Company Number: US-Eisai Medical Research-EC-2022-127604

PATIENT
  Age: 78 Year
  Sex: Female

DRUGS (4)
  1. DAYVIGO [Suspect]
     Active Substance: LEMBOREXANT
     Indication: Insomnia
     Route: 048
     Dates: start: 20221104, end: 20221105
  2. CLONAZEPAM [Concomitant]
     Active Substance: CLONAZEPAM
     Indication: Anxiety
  3. SYNTHROID [Concomitant]
     Active Substance: LEVOTHYROXINE SODIUM
     Indication: Hypothyroidism
  4. NITRAZEPAM [Concomitant]
     Active Substance: NITRAZEPAM
     Indication: Anxiety

REACTIONS (4)
  - Drug ineffective [Recovering/Resolving]
  - Somnolence [Recovering/Resolving]
  - Fatigue [Not Recovered/Not Resolved]
  - Wrong technique in product usage process [Not Recovered/Not Resolved]

NARRATIVE: CASE EVENT DATE: 20221104
